FAERS Safety Report 5745934-0 (Version None)
Quarter: 2008Q2

REPORT INFORMATION
  Report Type: 
  Country: None (occurrence: None)
  Receive Date: 20080520
  Receipt Date: 20080506
  Transmission Date: 20081010
  Serious: Yes (Hospitalization)
  Sender: FDA-Public Use
  Company Number: 2008BI005317

PATIENT
  Age: 66 Year
  Sex: Male
  Weight: 99 kg

DRUGS (2)
  1. AVONEX [Suspect]
     Indication: MULTIPLE SCLEROSIS
     Dosage: 20 UG; QW; IM
     Route: 030
     Dates: start: 19981027
  2. PREDNISONE TAB [Concomitant]

REACTIONS (15)
  - BACTERIAL INFECTION [None]
  - CORONARY ARTERY OCCLUSION [None]
  - CORONARY ARTERY STENOSIS [None]
  - CROHN'S DISEASE [None]
  - FALL [None]
  - GASTRIC DISORDER [None]
  - GASTRIC ULCER [None]
  - GASTROINTESTINAL HAEMORRHAGE [None]
  - HIP FRACTURE [None]
  - LARGE INTESTINAL ULCER [None]
  - MYOCARDIAL INFARCTION [None]
  - OESOPHAGEAL DISORDER [None]
  - RED BLOOD CELL COUNT DECREASED [None]
  - SCAR [None]
  - SEPTIC SHOCK [None]
